FAERS Safety Report 4693621-2 (Version None)
Quarter: 2005Q2

REPORT INFORMATION
  Report Type: 
  Country: None (occurrence: None)
  Receive Date: 20050616
  Receipt Date: 20050531
  Transmission Date: 20051028
  Serious: Yes (Other)
  Sender: FDA-Public Use
  Company Number: 2005BH000005

PATIENT

DRUGS (1)
  1. WATER FOR INJECTION (WATER FOR INJECTION) [Suspect]
     Indication: MEDICATION ERROR
     Dates: start: 20050524, end: 20050524

REACTIONS (2)
  - RENAL DISORDER [None]
  - WRONG DRUG ADMINISTERED [None]
